FAERS Safety Report 9197440 (Version 1)
Quarter: 2013Q1

REPORT INFORMATION
  Report Type: Report from Study
  Country: CH (occurrence: CH)
  Receive Date: 20130328
  Receipt Date: 20130328
  Transmission Date: 20140127
  Serious: Yes (Disabling, Other)
  Sender: FDA-Public Use
  Company Number: CH-JNJFOC-20130314145

PATIENT
  Sex: Male
  Weight: 94 kg

DRUGS (6)
  1. STELARA [Suspect]
     Indication: PSORIASIS
     Dates: start: 20120824
  2. COVERSUM [Concomitant]
  3. CONCOR [Concomitant]
  4. ASS [Concomitant]
  5. OLFLEX PLUS [Concomitant]
  6. CONDROSULF [Concomitant]

REACTIONS (1)
  - Pericardial effusion [Unknown]
